FAERS Safety Report 9599674 (Version 1)
Quarter: 2013Q4

REPORT INFORMATION
  Report Type: Spontaneous
  Country: US (occurrence: US)
  Receive Date: 20131004
  Receipt Date: 20131004
  Transmission Date: 20140711
  Serious: No
  Sender: FDA-Public Use
  Company Number: US-AMGEN-USASP2013030844

PATIENT
  Age: 74 Year
  Sex: Female
  Weight: 70.3 kg

DRUGS (10)
  1. ENBREL [Suspect]
     Indication: PRODUCT USED FOR UNKNOWN INDICATION
     Dosage: 50 MG, QWK
     Route: 058
  2. METHOTREXATE [Concomitant]
     Dosage: 2.5 MG, UNK
  3. ADVAIR [Concomitant]
     Dosage: 100 / 50
  4. SYNTHROID [Concomitant]
     Dosage: 100 MUG, UNK
  5. HYDROCHLOROTHIAZIDE WITH TRIAMTERENE [Concomitant]
     Dosage: 25 - 50 MG, UNK
  6. PREVACID [Concomitant]
     Dosage: 15 MG, UNK
  7. FOLIC ACID [Concomitant]
     Dosage: UNK
  8. CALCIUM 500+D [Concomitant]
     Dosage: UNK
  9. CLARITIN-D [Concomitant]
     Dosage: 10 - 240 MG, UNK
  10. MULTI                              /05812401/ [Concomitant]
     Dosage: UNK

REACTIONS (1)
  - Therapeutic response decreased [Unknown]
